FAERS Safety Report 5004992-1 (Version None)
Quarter: 2006Q1

REPORT INFORMATION
  Report Type: 
  Country: None (occurrence: None)
  Receive Date: 20060324
  Receipt Date: 20051212
  Transmission Date: 20060701
  Serious: Yes (Hospitalization)
  Sender: FDA-Public Use
  Company Number: 05P-163-0319190-00

PATIENT
  Age: 53 Year
  Sex: Male
  Weight: 100 kg

DRUGS (9)
  1. DEPAKENE [Suspect]
     Indication: CONVULSION
     Dosage: 100MG IN AM, 1500MG QHS, PER ORAL
     Route: 048
     Dates: end: 20051108
  2. DEPAKENE [Suspect]
     Indication: INTERMITTENT EXPLOSIVE DISORDER
     Dosage: 100MG IN AM, 1500MG QHS, PER ORAL
     Route: 048
     Dates: end: 20051108
  3. DEPAKOTE [Suspect]
     Indication: CONVULSION
     Dosage: 1500 MG, 2 IN 1 D, PER ORAL
     Route: 048
     Dates: start: 20051108
  4. DEPAKOTE [Suspect]
     Indication: INTERMITTENT EXPLOSIVE DISORDER
     Dosage: 1500 MG, 2 IN 1 D, PER ORAL
     Route: 048
     Dates: start: 20051108
  5. DILTIAZEM HYDROCHLORIDE [Concomitant]
  6. TEMAZEPAM [Concomitant]
  7. CLOPIDOGREL BISULFATE [Concomitant]
     Dates: start: 20051108
  8. PREDNISONE [Concomitant]
     Dates: start: 20051108
  9. QUETIAPINE FUMARATE [Concomitant]
     Dates: start: 20051108

REACTIONS (2)
  - DEAFNESS [None]
  - MENTAL STATUS CHANGES [None]
